FAERS Safety Report 13754804 (Version 1)
Quarter: 2017Q3

REPORT INFORMATION
  Report Type: Spontaneous
  Country: PL (occurrence: PL)
  Receive Date: 20170714
  Receipt Date: 20170714
  Transmission Date: 20171127
  Serious: Yes (Hospitalization)
  Sender: FDA-Public Use
  Company Number: PL-SUN PHARMACEUTICAL INDUSTRIES LTD-2017RR-145093

PATIENT
  Age: 23 Year
  Sex: Female
  Weight: 57 kg

DRUGS (17)
  1. AXOTRET [Suspect]
     Active Substance: ISOTRETINOIN
     Indication: ROSACEA
     Dosage: 20 MG, DAILY
     Route: 048
     Dates: start: 20161027
  2. DOXYCYCLINE. [Concomitant]
     Active Substance: DOXYCYCLINE
     Indication: ARTHROPOD BITE
     Dosage: 20 TABLETS
     Route: 065
  3. PROXACIN [Concomitant]
     Indication: ARTHROPOD BITE
     Dosage: UNK
     Route: 065
  4. OXYCORT SPRAY [Concomitant]
     Indication: ARTHROPOD BITE
     Dosage: UNK
     Route: 065
  5. AXOTRET [Suspect]
     Active Substance: ISOTRETINOIN
     Dosage: 20 MG, DAILY, FOR ABOUT 5 DAYS
     Route: 048
     Dates: end: 20170515
  6. LIRRA [Concomitant]
     Indication: PRODUCT USED FOR UNKNOWN INDICATION
     Dosage: UNK
     Route: 065
  7. ZINNAT [Concomitant]
     Active Substance: CEFUROXIME AXETIL
     Indication: ARTHROPOD BITE
     Dosage: UNK
     Route: 065
  8. AZIMYCIN 500 [Concomitant]
     Indication: PRODUCT USED FOR UNKNOWN INDICATION
     Dosage: 6 TABLETS
     Route: 065
     Dates: start: 20170508
  9. BEDICORT G [Concomitant]
     Indication: PERIPHERAL SWELLING
     Dosage: UNK
     Route: 065
     Dates: start: 20170513
  10. CONTRAHIST [Concomitant]
     Indication: ALLERGY PROPHYLAXIS
     Dosage: UNK
     Route: 065
     Dates: start: 20170513
  11. RUPAFIN [Concomitant]
     Active Substance: RUPATADINE FUMARATE
     Indication: PERIPHERAL SWELLING
     Dosage: UNK
     Route: 065
  12. PIGMENTUM CASTELLANI [Concomitant]
     Indication: ARTHROPOD BITE
     Dosage: UNK
     Route: 065
  13. FUCIDIN [Concomitant]
     Active Substance: FUSIDIC ACID
     Indication: ARTHROPOD BITE
     Dosage: UNK
     Route: 065
  14. TANNIC ACID [Concomitant]
     Active Substance: TANNIC ACID
     Indication: ARTHROPOD BITE
     Dosage: UNK
     Route: 065
  15. CLINDAMYCIN. [Concomitant]
     Active Substance: CLINDAMYCIN
     Indication: PERIPHERAL SWELLING
     Dosage: UNK
     Route: 065
     Dates: start: 20170513
  16. ASKINA CALGITROL AG [Concomitant]
     Indication: ARTHROPOD BITE
     Dosage: UNK
     Route: 065
  17. AXOTRET [Suspect]
     Active Substance: ISOTRETINOIN
     Dosage: 40 MG, DAILY, FOR ABOUT 5 MONTHS
     Route: 048

REACTIONS (7)
  - Cellulitis [Unknown]
  - Nail growth abnormal [Unknown]
  - Peripheral swelling [Unknown]
  - Pain in extremity [Unknown]
  - Paronychia [Unknown]
  - Excessive granulation tissue [Unknown]
  - Nail pigmentation [Unknown]

NARRATIVE: CASE EVENT DATE: 201612
